FAERS Safety Report 24146905 (Version 1)
Quarter: 2024Q3

REPORT INFORMATION
  Report Type: Spontaneous
  Country: CN (occurrence: CN)
  Receive Date: 20240729
  Receipt Date: 20240729
  Transmission Date: 20241016
  Serious: Yes (Life-Threatening, Hospitalization)
  Sender: BAYER
  Company Number: CN-BAYER-2024A106349

PATIENT
  Age: 63 Year
  Sex: Male
  Weight: 53 kg

DRUGS (1)
  1. STIVARGA [Suspect]
     Active Substance: REGORAFENIB MONOHYDRATE
     Indication: Hepatic cancer
     Dosage: 80 MG, QD
     Route: 048
     Dates: start: 20240614, end: 20240707

REACTIONS (9)
  - Drug eruption [Recovering/Resolving]
  - Skin erosion [Recovering/Resolving]
  - Mouth ulceration [Recovering/Resolving]
  - Oral mucosa erosion [Recovering/Resolving]
  - Skin disorder [Recovering/Resolving]
  - Lip pain [Recovering/Resolving]
  - Extravasation blood [Recovering/Resolving]
  - Effusion [Recovering/Resolving]
  - Off label use [None]

NARRATIVE: CASE EVENT DATE: 20240614
